FAERS Safety Report 23082791 (Version 1)
Quarter: 2023Q4

REPORT INFORMATION
  Report Type: Spontaneous
  Country: CN (occurrence: CN)
  Receive Date: 20231019
  Receipt Date: 20231019
  Transmission Date: 20240109
  Serious: Yes (Life-Threatening)
  Sender: FDA-Public Use
  Company Number: CN-SA-SAC20231018000923

PATIENT
  Age: 39 Year
  Sex: Female
  Weight: 60.5 kg

DRUGS (3)
  1. ELOXATIN [Suspect]
     Active Substance: OXALIPLATIN
     Indication: Rectal cancer
     Dosage: 142 MG, QD
     Route: 041
     Dates: start: 20230928, end: 20230928
  2. STERILE WATER FOR INJECTION [Concomitant]
     Active Substance: WATER
     Dosage: 10 ML
     Dates: start: 20230928
  3. DEXTROSE [Concomitant]
     Active Substance: DEXTROSE\DEXTROSE MONOHYDRATE
     Dosage: 500 ML
     Route: 041

REACTIONS (4)
  - Respiratory disorder [Recovering/Resolving]
  - Chest discomfort [Recovering/Resolving]
  - Chest pain [Recovering/Resolving]
  - Dyspnoea [Recovering/Resolving]

NARRATIVE: CASE EVENT DATE: 20230928
